FAERS Safety Report 25564781 (Version 1)
Quarter: 2025Q3

REPORT INFORMATION
  Report Type: Spontaneous
  Country: US (occurrence: None)
  Receive Date: 20250715
  Receipt Date: 20250715
  Transmission Date: 20251021
  Serious: Yes (Hospitalization)
  Sender: FDA-CTU
  Company Number: None

PATIENT
  Sex: Female

DRUGS (2)
  1. AMBRISENTAN [Suspect]
     Active Substance: AMBRISENTAN
     Indication: Pulmonary arterial hypertension
     Dosage: 10 MG DAILY ORAL ?
     Route: 048
     Dates: start: 20220210
  2. UPTRAVI [Suspect]
     Active Substance: SELEXIPAG

REACTIONS (5)
  - Peripheral swelling [None]
  - Joint swelling [None]
  - Peripheral swelling [None]
  - Oxygen consumption increased [None]
  - Thoracic vertebral fracture [None]
